FAERS Safety Report 5300860-6 (Version None)
Quarter: 2007Q1

REPORT INFORMATION
  Report Type: 
  Country: None (occurrence: None)
  Receive Date: 20070201
  Receipt Date: 20061009
  Transmission Date: 20070707
  Serious: No
  Sender: FDA-Public Use
  Company Number: 2006PV022839

PATIENT
  Age: 64 Year
  Sex: Female

DRUGS (4)
  1. BYETTA [Suspect]
     Indication: DRUG USE FOR UNKNOWN INDICATION
     Dosage: SEE IMAGE
     Route: 058
     Dates: start: 20060801, end: 20060101
  2. BYETTA [Suspect]
     Indication: DRUG USE FOR UNKNOWN INDICATION
     Dosage: SEE IMAGE
     Route: 058
     Dates: end: 20060101
  3. GLUCOPHAGE [Concomitant]
  4. GLUCOTROL [Concomitant]

REACTIONS (6)
  - DECREASED APPETITE [None]
  - DYSPEPSIA [None]
  - NAUSEA [None]
  - OVERDOSE [None]
  - VOMITING [None]
  - WEIGHT DECREASED [None]
